FAERS Safety Report 9379164 (Version 1)
Quarter: 2013Q3

REPORT INFORMATION
  Report Type: Spontaneous
  Country: US (occurrence: US)
  Receive Date: 20130702
  Receipt Date: 20130702
  Transmission Date: 20140515
  Serious: Yes (Death)
  Sender: FDA-Public Use
  Company Number: US-ASTELLAS-2013US006794

PATIENT
  Age: 84 Year
  Sex: Female

DRUGS (2)
  1. VESICARE [Suspect]
     Indication: POLLAKIURIA
     Dosage: 5 MG, UID/QD
     Route: 048
  2. VESICARE [Suspect]
     Indication: URGE INCONTINENCE

REACTIONS (1)
  - Death [Fatal]
